FAERS Safety Report 5187309-1 (Version None)
Quarter: 2006Q4

REPORT INFORMATION
  Report Type: 
  Country: None (occurrence: None)
  Receive Date: 20061214
  Receipt Date: 20061204
  Transmission Date: 20070319
  Serious: Yes (Other)
  Sender: FDA-Public Use
  Company Number: 2006149580

PATIENT
  Age: 49 Year
  Sex: Female
  Weight: 110 kg

DRUGS (3)
  1. XALATAN [Suspect]
     Indication: GLAUCOMA
     Dosage: 1 DROP, 1 IN 1 D, OPHTHALMIC
     Route: 047
     Dates: start: 20030106
  2. AZOPT [Concomitant]
  3. BETOPTIC [Concomitant]

REACTIONS (1)
  - PALPITATIONS [None]
